FAERS Safety Report 7079133-X (Version None)
Quarter: 2010Q4

REPORT INFORMATION
  Report Type: 
  Country: None (occurrence: None)
  Receive Date: 20101102
  Receipt Date: 20101028
  Transmission Date: 20110411
  Serious: Yes (Other)
  Sender: FDA-Public Use
  Company Number: A0876184A

PATIENT
  Sex: Female

DRUGS (2)
  1. TYKERB [Suspect]
     Dosage: 1250MG PER DAY
     Route: 048
     Dates: start: 20090718, end: 20100809
  2. XELODA [Concomitant]
     Dosage: 1350MG TWICE PER DAY
     Route: 048
     Dates: start: 20090701, end: 20100809

REACTIONS (1)
  - BREAST CANCER METASTATIC [None]
